FAERS Safety Report 11073420 (Version 2)
Quarter: 2015Q2

REPORT INFORMATION
  Report Type: Spontaneous
  Country: FR (occurrence: FR)
  Receive Date: 20150428
  Receipt Date: 20150514
  Transmission Date: 20150821
  Serious: Yes (Hospitalization)
  Sender: FDA-Public Use
  Company Number: FR-SA-2015SA052280

PATIENT
  Age: 71 Year
  Sex: Male

DRUGS (6)
  1. METFORMIN [Suspect]
     Active Substance: METFORMIN HYDROCHLORIDE
     Route: 048
     Dates: start: 20020528
  2. LANTUS [Suspect]
     Active Substance: INSULIN GLARGINE
     Route: 058
  3. ENALAPRIL [Suspect]
     Active Substance: ENALAPRIL
     Route: 048
     Dates: start: 20020522
  4. JANUVIA [Suspect]
     Active Substance: SITAGLIPTIN PHOSPHATE
     Route: 048
     Dates: start: 20120210, end: 20141106
  5. KARDEGIC [Suspect]
     Active Substance: ASPIRIN LYSINE
     Route: 048
     Dates: start: 20020528
  6. LIPUR [Suspect]
     Active Substance: GEMFIBROZIL
     Route: 048
     Dates: start: 20070124

REACTIONS (1)
  - Breast neoplasm [Recovered/Resolved]

NARRATIVE: CASE EVENT DATE: 20140901
